FAERS Safety Report 24971894 (Version 1)
Quarter: 2025Q1

REPORT INFORMATION
  Report Type: Spontaneous
  Country: FR (occurrence: FR)
  Receive Date: 20250214
  Receipt Date: 20250214
  Transmission Date: 20250409
  Serious: Yes (Other)
  Sender: ELI LILLY AND COMPANY
  Company Number: None

PATIENT
  Age: 82 Year
  Sex: Female
  Weight: 77 kg

DRUGS (7)
  1. RETEVMO [Suspect]
     Active Substance: SELPERCATINIB
     Indication: Lung neoplasm malignant
     Dosage: 160 MG, BID
     Route: 048
     Dates: start: 20241019, end: 20241218
  2. RETEVMO [Suspect]
     Active Substance: SELPERCATINIB
     Dosage: 120 MG, BID
     Route: 048
     Dates: start: 20241219
  3. GLICLAZIDE [Concomitant]
     Active Substance: GLICLAZIDE
     Indication: Diabetes mellitus
     Dosage: 60 MG, DAILY
     Route: 048
  4. AMLODIPINE [Concomitant]
     Active Substance: AMLODIPINE BESYLATE
     Indication: Hypertension
     Dosage: 5 MG, BID
     Route: 048
  5. NAPROXEN [Concomitant]
     Active Substance: NAPROXEN
     Indication: Pain
     Dosage: 1 DOSAGE FORM, DAILY
     Route: 048
  6. OMEPRAZOLE [Concomitant]
     Active Substance: OMEPRAZOLE
     Indication: Gastrooesophageal reflux prophylaxis
     Dosage: 20 MG, DAILY
     Route: 048
  7. ACETAMINOPHEN\OPIUM [Concomitant]
     Active Substance: ACETAMINOPHEN\OPIUM
     Indication: Pain
     Dosage: 1 DOSAGE FORM, EVERY 8 HRS (IZALGI 500 MG/25 MG, GELULE)
     Route: 048

REACTIONS (13)
  - Gastrooesophageal reflux disease [Not Recovered/Not Resolved]
  - Acute kidney injury [Recovered/Resolved]
  - Hypertension [Recovered/Resolved]
  - Oesophageal pain [Not Recovered/Not Resolved]
  - Dysgeusia [Not Recovered/Not Resolved]
  - Epistaxis [Recovered/Resolved]
  - Palpitations [Not Recovered/Not Resolved]
  - Weight decreased [Not Recovered/Not Resolved]
  - Vision blurred [Not Recovered/Not Resolved]
  - Dizziness [Not Recovered/Not Resolved]
  - Nausea [Not Recovered/Not Resolved]
  - Abdominal pain [Not Recovered/Not Resolved]
  - Decreased appetite [Not Recovered/Not Resolved]

NARRATIVE: CASE EVENT DATE: 20241029
